FAERS Safety Report 20748647 (Version 1)
Quarter: 2022Q2

REPORT INFORMATION
  Report Type: Spontaneous
  Country: US (occurrence: US)
  Receive Date: 20220426
  Receipt Date: 20220426
  Transmission Date: 20220721
  Serious: Yes (Hospitalization)
  Sender: FDA-Public Use
  Company Number: US-PTx-2021000067

PATIENT
  Age: 2 Year
  Sex: Female

DRUGS (1)
  1. LEUKINE [Suspect]
     Active Substance: SARGRAMOSTIM
     Indication: Product used for unknown indication
     Dosage: TOTAL OF 14 DOSES
     Route: 058
     Dates: start: 20211012

REACTIONS (3)
  - Administration site swelling [Unknown]
  - Administration site erythema [Unknown]
  - Administration site rash [Unknown]

NARRATIVE: CASE EVENT DATE: 20210913
